FAERS Safety Report 15825207 (Version 2)
Quarter: 2019Q1

REPORT INFORMATION
  Report Type: Spontaneous
  Country: US (occurrence: US)
  Receive Date: 20190115
  Receipt Date: 20190305
  Transmission Date: 20190417
  Serious: No
  Sender: FDA-Public Use
  Company Number: US-PFIZER INC-2019017325

PATIENT
  Age: 40 Year
  Sex: Male
  Weight: 121.1 kg

DRUGS (8)
  1. SOMAVERT [Suspect]
     Active Substance: PEGVISOMANT
     Indication: PITUITARY TUMOUR
     Dosage: 20 MG, 1X/DAY
     Dates: start: 20181201
  2. TESTOSTERONE CYPIONATE. [Concomitant]
     Active Substance: TESTOSTERONE CYPIONATE
     Dosage: 10 MG, WEEKLY
     Dates: start: 2014
  3. SOMAVERT [Suspect]
     Active Substance: PEGVISOMANT
     Indication: ACROMEGALY
     Dosage: 10 MG, DAILY
  4. HYDROCORTISONE. [Concomitant]
     Active Substance: HYDROCORTISONE
     Indication: CORTISOL DEFICIENCY
     Dosage: 10 MG, 1X/DAY
     Dates: start: 20180601
  5. HYDROCORTISONE. [Concomitant]
     Active Substance: HYDROCORTISONE
     Dosage: 5 MG, 1X/DAY
     Dates: start: 20180601
  6. TIROSINT [Concomitant]
     Active Substance: LEVOTHYROXINE SODIUM
     Indication: THYROID DISORDER
     Dosage: 112 UG, 1X/DAY
     Dates: start: 20180601
  7. BYSTOLIC [Concomitant]
     Active Substance: NEBIVOLOL HYDROCHLORIDE
     Indication: BLOOD PRESSURE ABNORMAL
     Dosage: 10 MG, 1X/DAY
     Dates: start: 20170801
  8. ALLEGRA [Concomitant]
     Active Substance: FEXOFENADINE HYDROCHLORIDE
     Indication: HYPERSENSITIVITY
     Dosage: 180 MG, 1X/DAY
     Dates: start: 20170101

REACTIONS (6)
  - Abdominal distension [Not Recovered/Not Resolved]
  - Flatulence [Not Recovered/Not Resolved]
  - Insulin-like growth factor increased [Not Recovered/Not Resolved]
  - Arthralgia [Not Recovered/Not Resolved]
  - Back pain [Not Recovered/Not Resolved]
  - Weight fluctuation [Not Recovered/Not Resolved]

NARRATIVE: CASE EVENT DATE: 20181201
